FAERS Safety Report 7446644-4 (Version None)
Quarter: 2011Q2

REPORT INFORMATION
  Report Type: 
  Country: None (occurrence: None)
  Receive Date: 20110419
  Receipt Date: 20110407
  Transmission Date: 20111010
  Serious: Yes (Disabling, Other)
  Sender: FDA-Public Use
  Company Number: ACO_23140_2011

PATIENT
  Age: 70 Year
  Sex: Male
  Weight: 106.6 kg

DRUGS (7)
  1. AMPYRA [Suspect]
     Indication: GAIT DISTURBANCE
     Dosage: 10 MG, BID, ORAL
     Route: 048
     Dates: start: 20100501, end: 20110329
  2. METFORMIN (METFORMIN) [Concomitant]
  3. METOPROLOL (METOPROLOL) [Concomitant]
  4. NORVASC [Concomitant]
  5. DIURETICS [Concomitant]
  6. UNSPECIFIED STATIN () [Suspect]
     Indication: BLOOD CHOLESTEROL
  7. RAMIPRIL [Concomitant]

REACTIONS (12)
  - MUSCLE SPASMS [None]
  - FEELING ABNORMAL [None]
  - ABASIA [None]
  - MOBILITY DECREASED [None]
  - INSOMNIA [None]
  - NAUSEA [None]
  - BACK PAIN [None]
  - HALLUCINATION [None]
  - DIZZINESS [None]
  - FOOD AVERSION [None]
  - BLOOD PRESSURE DECREASED [None]
  - DECREASED APPETITE [None]
